FAERS Safety Report 10458645 (Version 1)
Quarter: 2014Q3

REPORT INFORMATION
  Report Type: Spontaneous
  Country: US (occurrence: None)
  Receive Date: 20140916
  Receipt Date: 20140916
  Transmission Date: 20150326
  Serious: Yes (Hospitalization)
  Sender: FDA-Public Use
  Company Number: None

PATIENT
  Age: 5 Year
  Sex: Female

DRUGS (4)
  1. ONCASPAR [Suspect]
     Active Substance: PEGASPARGASE
  2. CYTARABINE. [Suspect]
     Active Substance: CYTARABINE
  3. VINCRISTINE SULFATE. [Suspect]
     Active Substance: VINCRISTINE SULFATE
  4. DEXAMETHASONE. [Suspect]
     Active Substance: DEXAMETHASONE

REACTIONS (6)
  - Respiratory failure [None]
  - Pancytopenia [None]
  - Decreased appetite [None]
  - Fungal infection [None]
  - Pyrexia [None]
  - Zygomycosis [None]

NARRATIVE: CASE EVENT DATE: 20140707
